FAERS Safety Report 16544615 (Version 1)
Quarter: 2019Q3

REPORT INFORMATION
  Report Type: Spontaneous
  Country: US (occurrence: US)
  Receive Date: 20190708
  Receipt Date: 20190708
  Transmission Date: 20191004
  Serious: No
  Sender: FDA-Public Use
  Company Number: None

PATIENT
  Age: 67 Year
  Sex: Female
  Weight: 90 kg

DRUGS (18)
  1. OTEZLA [Suspect]
     Active Substance: APREMILAST
     Indication: PSORIATIC ARTHROPATHY
     Dosage: ?          QUANTITY:1 TABLET(S);?
     Route: 048
  2. LOVENOX [Concomitant]
     Active Substance: ENOXAPARIN SODIUM
  3. TROSPIUM [Concomitant]
     Active Substance: TROSPIUM
  4. POTASSIUM GLUCONATE [Concomitant]
     Active Substance: POTASSIUM GLUCONATE
  5. EMERGEN-C [Concomitant]
     Active Substance: VITAMINS
  6. WARFARIN [Concomitant]
     Active Substance: WARFARIN
  7. BIOTIN [Concomitant]
     Active Substance: BIOTIN
  8. PROBIOTIC [Concomitant]
     Active Substance: PROBIOTICS NOS
  9. LISINOPRIL. [Concomitant]
     Active Substance: LISINOPRIL
  10. CETRIZINE [Concomitant]
     Active Substance: CETIRIZINE HYDROCHLORIDE
  11. VITAMIN D3 [Concomitant]
     Active Substance: CHOLECALCIFEROL
  12. VITAMIN B12 [Concomitant]
     Active Substance: CYANOCOBALAMIN
  13. MELATONIN [Concomitant]
     Active Substance: MELATONIN
  14. ATORVASTATIN [Concomitant]
     Active Substance: ATORVASTATIN
  15. LASIX [Concomitant]
     Active Substance: FUROSEMIDE
  16. METHOTREXATE. [Concomitant]
     Active Substance: METHOTREXATE
  17. ATENOLOL. [Concomitant]
     Active Substance: ATENOLOL
  18. FOLIC ACID. [Concomitant]
     Active Substance: FOLIC ACID

REACTIONS (1)
  - Thrombosis [None]

NARRATIVE: CASE EVENT DATE: 20190513
